FAERS Safety Report 15954362 (Version 5)
Quarter: 2019Q4

REPORT INFORMATION
  Report Type: Spontaneous
  Country: US (occurrence: US)
  Receive Date: 20190212
  Receipt Date: 20191124
  Transmission Date: 20200122
  Serious: Yes (Death, Hospitalization, Other)
  Sender: FDA-Public Use
  Company Number: PHEH2019US006164

PATIENT
  Age: 10 Year
  Sex: Female
  Weight: 38 kg

DRUGS (73)
  1. PEMBROLIZUMAB. [Concomitant]
     Active Substance: PEMBROLIZUMAB
     Dosage: 80 MG, ONCE/SINGLE
     Route: 042
     Dates: start: 20190127
  2. DIPHENHYDRAMINE. [Concomitant]
     Active Substance: DIPHENHYDRAMINE
     Dosage: 25 MG, ONCE/SINGLE
     Route: 042
     Dates: start: 20190127
  3. FUROSEMIDE. [Concomitant]
     Active Substance: FUROSEMIDE
     Indication: PRODUCT USED FOR UNKNOWN INDICATION
     Dosage: 15 MG, Q12H
     Route: 042
     Dates: start: 20190118
  4. MICAFUNGIN. [Concomitant]
     Active Substance: MICAFUNGIN SODIUM
     Indication: PRODUCT USED FOR UNKNOWN INDICATION
     Dosage: 100 MG, Q24H
     Route: 042
     Dates: start: 20190110
  5. OCULAR LUBRICANT [Concomitant]
     Dosage: 1 DF, Q2H
     Route: 047
     Dates: start: 20190122
  6. RASBURICASE [Concomitant]
     Active Substance: RASBURICASE
     Indication: PRODUCT USED FOR UNKNOWN INDICATION
     Dosage: 6 MG, ONCE/SINGLE
     Route: 042
     Dates: start: 20190127
  7. AMINOCAPROIC ACID. [Concomitant]
     Active Substance: AMINOCAPROIC ACID
     Indication: PRODUCT USED FOR UNKNOWN INDICATION
     Dosage: 2000 MG, ONCE/SINGLE
     Route: 042
     Dates: start: 20190122
  8. CEFEPIME [Concomitant]
     Active Substance: CEFEPIME HYDROCHLORIDE
     Indication: PRODUCT USED FOR UNKNOWN INDICATION
     Dosage: 1900 MG, Q8H
     Route: 042
     Dates: start: 20190120
  9. DIPHENHYDRAMINE. [Concomitant]
     Active Substance: DIPHENHYDRAMINE
     Indication: PRURITUS
     Dosage: 12.5 MG, Q6H
     Route: 042
     Dates: start: 20190110
  10. FUROSEMIDE. [Concomitant]
     Active Substance: FUROSEMIDE
     Dosage: 80 MG, ONCE/SINGLE
     Route: 040
     Dates: start: 20190127
  11. GANCICLOVIR. [Concomitant]
     Active Substance: GANCICLOVIR
     Indication: PRODUCT USED FOR UNKNOWN INDICATION
     Dosage: 185 MG, Q24H
     Route: 042
     Dates: start: 20190107
  12. POTASSIUM CHLORIDE. [Concomitant]
     Active Substance: POTASSIUM CHLORIDE
     Indication: PRODUCT USED FOR UNKNOWN INDICATION
     Dosage: 10 MEQ, ONCE/SINGLE
     Route: 042
     Dates: start: 20190127
  13. SODIUM CHLORIDE. [Concomitant]
     Active Substance: SODIUM CHLORIDE
     Dosage: 500 ML, ONCE/SINGLE
     Route: 042
     Dates: start: 20190124
  14. EPINEPHRINE. [Concomitant]
     Active Substance: EPINEPHRINE
     Indication: ANAPHYLACTIC REACTION
     Dosage: 0.4 MG, PRN
     Route: 030
  15. KYTRIL [Concomitant]
     Active Substance: GRANISETRON HYDROCHLORIDE
     Indication: NAUSEA
     Dosage: 350 UG, Q12H (PRN)
     Route: 042
  16. KYTRIL [Concomitant]
     Active Substance: GRANISETRON HYDROCHLORIDE
     Indication: VOMITING
  17. HYDROMORPHONE [Concomitant]
     Active Substance: HYDROMORPHONE
     Dosage: 0.8 MG, UNK
     Route: 042
     Dates: start: 20190122
  18. KYMRIAH [Suspect]
     Active Substance: TISAGENLECLEUCEL
     Indication: ACUTE LYMPHOCYTIC LEUKAEMIA
     Dosage: 5.9220X10E7 CELLS/ML, (0.6X10E9 TOTAL VIABLE CELLS, 1.9X10E6 CAR POSITIVE VIABLE T CELLS/KG), ONCE/S
     Route: 042
     Dates: start: 20190102
  19. CHLORHEXIDINE [Concomitant]
     Active Substance: CHLORHEXIDINE
     Indication: PRODUCT USED FOR UNKNOWN INDICATION
     Dosage: 15 ML, BID
     Route: 048
     Dates: start: 20181227
  20. CHLOROTHIAZIDE. [Concomitant]
     Active Substance: CHLOROTHIAZIDE
     Dosage: 150 MG, Q12H
     Route: 042
     Dates: start: 20090127
  21. AQUAPHOR [Concomitant]
     Active Substance: PETROLATUM
     Indication: PRODUCT USED FOR UNKNOWN INDICATION
     Dosage: 1 DF, BID
     Route: 061
     Dates: start: 20181227
  22. GANCICLOVIR. [Concomitant]
     Active Substance: GANCICLOVIR
     Dosage: 25 MG, Q24H
     Route: 042
     Dates: start: 20190128
  23. KEPPRA [Concomitant]
     Active Substance: LEVETIRACETAM
     Dosage: 175 MG, Q12H
     Route: 042
     Dates: start: 20190126
  24. OCULAR LUBRICANT [Concomitant]
     Indication: PRODUCT USED FOR UNKNOWN INDICATION
     Dosage: 1 DF, Q12H
     Route: 047
     Dates: start: 20190118
  25. ONDANSETRON [Concomitant]
     Active Substance: ONDANSETRON
     Dosage: 3.7 MG, ONCE/SINGLE
     Route: 065
     Dates: start: 20190124
  26. FENTANYL. [Concomitant]
     Active Substance: FENTANYL
     Indication: PAIN
     Dosage: 10 UG, Q5MIN
     Route: 042
     Dates: start: 20190124
  27. LACTATED RINGERS SOLUTION [Concomitant]
     Active Substance: CALCIUM CHLORIDE\POTASSIUM CHLORIDE\SODIUM CHLORIDE\SODIUM LACTATE
     Indication: PRODUCT USED FOR UNKNOWN INDICATION
     Dosage: 500 ML, UNK
     Route: 042
     Dates: start: 20190124
  28. TPN [Concomitant]
     Active Substance: AMINO ACIDS\DEXTROSE\ELECTROLYTES NOS\SOYBEAN OIL
     Indication: PRODUCT USED FOR UNKNOWN INDICATION
     Dosage: 1800 ML, UNK
     Route: 042
     Dates: start: 20190120
  29. SILTUXIMAB [Suspect]
     Active Substance: SILTUXIMAB
     Indication: ACUTE LYMPHOCYTIC LEUKAEMIA
     Dosage: UNK
     Route: 065
     Dates: start: 20190117
  30. DEXAMETHASONE. [Suspect]
     Active Substance: DEXAMETHASONE
     Indication: ACUTE LYMPHOCYTIC LEUKAEMIA
     Dosage: UNK
     Route: 065
     Dates: start: 20190111
  31. PEMBROLIZUMAB. [Concomitant]
     Active Substance: PEMBROLIZUMAB
     Indication: ACUTE LYMPHOCYTIC LEUKAEMIA
     Dosage: SINGLE DOSE
     Route: 065
  32. CHLOROTHIAZIDE. [Concomitant]
     Active Substance: CHLOROTHIAZIDE
     Dosage: 400 MG, Q12H
     Route: 042
     Dates: start: 20190128
  33. CLONIDINE. [Concomitant]
     Active Substance: CLONIDINE
     Dosage: 0.2 MG, Q24H
     Route: 061
     Dates: start: 20190125
  34. METHADONE [Concomitant]
     Active Substance: METHADONE HYDROCHLORIDE
     Indication: PRODUCT USED FOR UNKNOWN INDICATION
     Dosage: 5 MG, Q12H
     Route: 042
     Dates: start: 20190118
  35. NALOXONE [Concomitant]
     Active Substance: NALOXONE
     Indication: PRODUCT USED FOR UNKNOWN INDICATION
     Dosage: 185 UG, PRN
     Route: 042
     Dates: start: 20190108
  36. DEXTROSE. [Concomitant]
     Active Substance: DEXTROSE
     Dosage: 1000 ML, UNK
     Route: 042
     Dates: start: 20190129
  37. CHLOROTHIAZIDE. [Concomitant]
     Active Substance: CHLOROTHIAZIDE
     Indication: PRODUCT USED FOR UNKNOWN INDICATION
     Dosage: 150 MG, ONCE/SINGLE
     Route: 042
     Dates: start: 20190127
  38. CIPROFLOXACIN. [Concomitant]
     Active Substance: CIPROFLOXACIN
     Indication: PRODUCT USED FOR UNKNOWN INDICATION
     Dosage: 400 MG, Q12H
     Route: 042
     Dates: start: 20190122
  39. CIPROFLOXACIN. [Concomitant]
     Active Substance: CIPROFLOXACIN
     Dosage: 400 MG, Q18H
     Route: 042
     Dates: start: 20190127
  40. CLONIDINE. [Concomitant]
     Active Substance: CLONIDINE
     Indication: PRODUCT USED FOR UNKNOWN INDICATION
     Dosage: 0.1 MG, Q24H
     Route: 061
     Dates: start: 20190122
  41. FUROSEMIDE. [Concomitant]
     Active Substance: FUROSEMIDE
     Dosage: 40 MG, ONCE/SINGLE
     Route: 042
     Dates: start: 20190127
  42. HEPARIN [Concomitant]
     Active Substance: HEPARIN SODIUM
     Indication: PRODUCT USED FOR UNKNOWN INDICATION
     Dosage: 2 ML, Q96H
     Route: 042
     Dates: start: 20181227
  43. LORAZEPAM. [Concomitant]
     Active Substance: LORAZEPAM
     Dosage: 1.5 MG, Q6H
     Route: 042
     Dates: start: 20190129
  44. TOCILIZUMAB. [Concomitant]
     Active Substance: TOCILIZUMAB
     Indication: PRODUCT USED FOR UNKNOWN INDICATION
     Dosage: 280 MG, ONCE/SINGLE
     Route: 042
     Dates: start: 20190122
  45. HYDROMORPHONE [Concomitant]
     Active Substance: HYDROMORPHONE
     Dosage: 0.5 MG, UNK
     Route: 042
     Dates: start: 20190110
  46. METHYLPREDNISOLONE. [Suspect]
     Active Substance: METHYLPREDNISOLONE
     Indication: ACUTE LYMPHOCYTIC LEUKAEMIA
     Dosage: UNK
     Route: 065
     Dates: start: 20190115, end: 20190120
  47. ERYTHROMYCIN. [Concomitant]
     Active Substance: ERYTHROMYCIN
     Indication: PRODUCT USED FOR UNKNOWN INDICATION
     Dosage: 1 DF, BID
     Route: 047
     Dates: start: 20190125
  48. GANCICLOVIR. [Concomitant]
     Active Substance: GANCICLOVIR
     Dosage: 50 MG, Q24H
     Route: 042
     Dates: start: 20190126
  49. LIDOCAINE. [Concomitant]
     Active Substance: LIDOCAINE
     Indication: PRODUCT USED FOR UNKNOWN INDICATION
     Dosage: 1 DF, ONCE/SINGLE
     Route: 061
     Dates: start: 20190121
  50. LORAZEPAM. [Concomitant]
     Active Substance: LORAZEPAM
     Indication: NAUSEA
     Dosage: 0.5 MG, Q8H
     Route: 042
     Dates: start: 20190116
  51. METHADONE [Concomitant]
     Active Substance: METHADONE HYDROCHLORIDE
     Dosage: 5 MG, Q8H
     Route: 042
     Dates: start: 20190122
  52. METHADONE [Concomitant]
     Active Substance: METHADONE HYDROCHLORIDE
     Dosage: 5 MG, Q12H
     Route: 042
     Dates: start: 20190125
  53. OCULAR LUBRICANT [Concomitant]
     Dosage: 1 DF, Q4H
     Route: 047
     Dates: start: 20190127
  54. SODIUM CHLORIDE. [Concomitant]
     Active Substance: SODIUM CHLORIDE
     Dosage: 500 ML, PRN
     Route: 042
     Dates: start: 20190127
  55. ACETAMINOFEN [Concomitant]
     Active Substance: ACETAMINOPHEN
     Indication: PYREXIA
     Dosage: 480 MG, Q4H (PRN)
     Route: 048
     Dates: start: 20181227
  56. ACETAMINOFEN [Concomitant]
     Active Substance: ACETAMINOPHEN
     Indication: PAIN
     Dosage: 400 MG, Q4H (PRN)
     Route: 048
     Dates: start: 20190124
  57. SIMETHICONE (DIMETHICONE) [Concomitant]
     Active Substance: DIMETHICONE
     Indication: FLATULENCE
     Dosage: 40 MG, QID
     Route: 048
     Dates: start: 20181228
  58. DEXTROSE. [Concomitant]
     Active Substance: DEXTROSE
     Indication: PRODUCT USED FOR UNKNOWN INDICATION
     Dosage: 1000 ML, UNK
     Route: 042
     Dates: start: 20190124
  59. FUROSEMIDE. [Concomitant]
     Active Substance: FUROSEMIDE
     Dosage: 15 MG, ONCE/SINGLE
     Route: 042
     Dates: start: 20190123
  60. FUROSEMIDE. [Concomitant]
     Active Substance: FUROSEMIDE
     Dosage: 40 MG, ONCE/SINGLE
     Route: 040
     Dates: start: 20190129
  61. LORAZEPAM. [Concomitant]
     Active Substance: LORAZEPAM
     Indication: VOMITING
     Dosage: 0.5 MG, Q6H
     Route: 042
     Dates: start: 20190118
  62. LORAZEPAM. [Concomitant]
     Active Substance: LORAZEPAM
     Dosage: 0.8 MG, Q6H
     Route: 042
     Dates: start: 20190122
  63. ONDANSETRON [Concomitant]
     Active Substance: ONDANSETRON
     Indication: PRODUCT USED FOR UNKNOWN INDICATION
     Dosage: UNK
     Route: 065
  64. HYDROXYZINE [Concomitant]
     Active Substance: HYDROXYZINE HYDROCHLORIDE
     Indication: PRURITUS
     Dosage: 10 MG, Q6H (PRN)
     Route: 048
     Dates: start: 20190114
  65. DEXAMETHASONE. [Suspect]
     Active Substance: DEXAMETHASONE
     Dosage: 10 MG, Q6H
     Route: 042
     Dates: start: 20190124
  66. AMINOCAPROIC ACID. [Concomitant]
     Active Substance: AMINOCAPROIC ACID
     Dosage: 2000 MG, Q12H
     Route: 042
     Dates: start: 20190124
  67. KEPPRA [Concomitant]
     Active Substance: LEVETIRACETAM
     Indication: PRODUCT USED FOR UNKNOWN INDICATION
     Dosage: 350 MG, Q12H
     Route: 042
     Dates: start: 20190118
  68. SODIUM CHLORIDE. [Concomitant]
     Active Substance: SODIUM CHLORIDE
     Indication: PRODUCT USED FOR UNKNOWN INDICATION
     Dosage: 1000 ML, ONCE/SINGLE
     Route: 042
     Dates: start: 20190104
  69. SODIUM CHLORIDE. [Concomitant]
     Active Substance: SODIUM CHLORIDE
     Dosage: 1 DF, TID
     Route: 045
     Dates: start: 20190107
  70. HYDRALAZINE [Concomitant]
     Active Substance: HYDRALAZINE HYDROCHLORIDE
     Indication: PRODUCT USED FOR UNKNOWN INDICATION
     Dosage: 20 MG, Q4H (PRN)
     Route: 042
  71. HYDROMORPHONE [Concomitant]
     Active Substance: HYDROMORPHONE
     Indication: PAIN
     Dosage: 1 DF, PRN
     Route: 042
  72. LABETALOL [Concomitant]
     Active Substance: LABETALOL\LABETALOL HYDROCHLORIDE
     Indication: PRODUCT USED FOR UNKNOWN INDICATION
     Dosage: 20 MG, Q4H
     Route: 042
     Dates: start: 20190119
  73. DEXTROSE. [Concomitant]
     Active Substance: DEXTROSE
     Dosage: 40 ML, UNK
     Route: 042
     Dates: start: 20190125

REACTIONS (47)
  - Malignant neoplasm progression [Fatal]
  - Renal impairment [Unknown]
  - Toxicity to various agents [Unknown]
  - Thrombosis [Unknown]
  - Chest pain [Unknown]
  - Gastrointestinal disorder [Unknown]
  - Unresponsive to stimuli [Unknown]
  - Heart rate irregular [Unknown]
  - Hypertension [Unknown]
  - Nausea [Unknown]
  - Vision blurred [Unknown]
  - Organ failure [Fatal]
  - Mouth haemorrhage [Unknown]
  - Mass [Recovering/Resolving]
  - Neck mass [Unknown]
  - Periorbital oedema [Unknown]
  - Somnolence [Unknown]
  - Respiratory arrest [Unknown]
  - Pain in extremity [Unknown]
  - Oedema peripheral [Unknown]
  - Vascular compression [Unknown]
  - Chloroma [Unknown]
  - Oral pain [Unknown]
  - Drug ineffective [Unknown]
  - Acute lymphocytic leukaemia [Fatal]
  - Neurotoxicity [Not Recovered/Not Resolved]
  - Swelling [Not Recovered/Not Resolved]
  - Sedation [Unknown]
  - Pain [Unknown]
  - Dyspnoea [Unknown]
  - Nodule [Unknown]
  - Weight increased [Unknown]
  - Intraocular pressure increased [Unknown]
  - Nasal flaring [Unknown]
  - Headache [Unknown]
  - Vomiting [Unknown]
  - Cytokine release syndrome [Not Recovered/Not Resolved]
  - Tachycardia [Recovering/Resolving]
  - Pyrexia [Recovering/Resolving]
  - Exophthalmos [Unknown]
  - Visual impairment [Unknown]
  - Haemoptysis [Unknown]
  - Depressed level of consciousness [Unknown]
  - Cough [Unknown]
  - Muscular weakness [Recovering/Resolving]
  - Peripheral swelling [Unknown]
  - Cardiac arrest [Unknown]

NARRATIVE: CASE EVENT DATE: 20190104
